FAERS Safety Report 7654088-5 (Version None)
Quarter: 2011Q3

REPORT INFORMATION
  Report Type: 
  Country: None (occurrence: None)
  Receive Date: 20110803
  Receipt Date: 20110726
  Transmission Date: 20111222
  Serious: Yes (Hospitalization)
  Sender: FDA-Public Use
  Company Number: PHHY2011AU47258

PATIENT
  Sex: Female

DRUGS (2)
  1. CLOZAPINE [Suspect]
     Dosage: 300 MG
     Dates: start: 20100323
  2. TRAMADOL HCL [Suspect]

REACTIONS (2)
  - OVERDOSE [None]
  - SERUM SEROTONIN INCREASED [None]
